FAERS Safety Report 11462363 (Version 1)
Quarter: 2015Q3

REPORT INFORMATION
  Report Type: Spontaneous
  Country: US (occurrence: US)
  Receive Date: 20150831
  Receipt Date: 20150831
  Transmission Date: 20151125
  Serious: No
  Sender: FDA-Public Use
  Company Number: US-ELI_LILLY_AND_COMPANY-US201011001966

PATIENT
  Age: 59 Year
  Sex: Female

DRUGS (3)
  1. CYMBALTA [Suspect]
     Active Substance: DULOXETINE HYDROCHLORIDE
     Indication: NEURALGIA
     Dosage: 90 MG, DAILY (1/D)
  2. BACLOFEN. [Concomitant]
     Active Substance: BACLOFEN
  3. LUNESTA [Concomitant]
     Active Substance: ESZOPICLONE

REACTIONS (3)
  - Weight decreased [Not Recovered/Not Resolved]
  - Pain in extremity [Recovered/Resolved]
  - Off label use [Not Recovered/Not Resolved]
